FAERS Safety Report 11230269 (Version 1)
Quarter: 2015Q2

REPORT INFORMATION
  Report Type: Spontaneous
  Country: US (occurrence: None)
  Receive Date: 20150629
  Receipt Date: 20150629
  Transmission Date: 20150821
  Serious: Yes (Death)
  Sender: FDA-Public Use
  Company Number: PR 11182

PATIENT
  Sex: Female

DRUGS (5)
  1. TIMOPTOL-XE EYE DROPS [Concomitant]
  2. ZIOPTAN [Suspect]
     Active Substance: TAFLUPROST
     Indication: ANGLE CLOSURE GLAUCOMA
     Dates: start: 20090908, end: 20110226
  3. CRAVIT EYE DROPS [Concomitant]
  4. TARIVID (OFLOXACIN HYDROCHLORIDE) EYE OINMENT [Concomitant]
  5. GATIFLOXACIN EYE DROPS [Concomitant]

REACTIONS (1)
  - Death [None]
